FAERS Safety Report 20973756 (Version 1)
Quarter: 2022Q2

REPORT INFORMATION
  Report Type: Spontaneous
  Country: US (occurrence: US)
  Receive Date: 20220617
  Receipt Date: 20220617
  Transmission Date: 20220721
  Serious: Yes (Other)
  Sender: FDA-Public Use
  Company Number: US-NOVARTISPH-NVSC2022US136353

PATIENT

DRUGS (2)
  1. DOCETAXEL [Suspect]
     Active Substance: DOCETAXEL
     Indication: Hormone receptor positive HER2 negative breast cancer
     Dosage: 75 MG/M2, CYCLIC (ON DAY 1 AND CYCLED EVERY 21 DAYS FOR A TOTAL OF 4 CYCLES)
     Route: 042
  2. CYCLOPHOSPHAMIDE [Suspect]
     Active Substance: CYCLOPHOSPHAMIDE
     Indication: Hormone receptor positive HER2 negative breast cancer
     Dosage: 600 MG/M2, CYCLIC (ON DAY 1 AND CYCLED EVERY 21 DAYS FOR A TOTAL OF 4 CYCLES)
     Route: 042

REACTIONS (1)
  - Mucosal inflammation [Unknown]
